FAERS Safety Report 15299329 (Version 3)
Quarter: 2018Q3

REPORT INFORMATION
  Report Type: Report from Study
  Country: US (occurrence: US)
  Receive Date: 20180821
  Receipt Date: 20180904
  Transmission Date: 20181010
  Serious: Yes (Other)
  Sender: FDA-Public Use
  Company Number: US-UCBSA-2018035688

PATIENT
  Age: 49 Year
  Sex: Female
  Weight: 61 kg

DRUGS (6)
  1. KLONOPIN [Concomitant]
     Active Substance: CLONAZEPAM
     Indication: SLEEP DISORDER
  2. LEVETIRACETAM. [Suspect]
     Active Substance: LEVETIRACETAM
     Indication: PARTIAL SEIZURES
     Dosage: 1500 MG, 2X/DAY (BID)
     Route: 048
  3. LAMOTRIGINE. [Concomitant]
     Active Substance: LAMOTRIGINE
     Indication: SEIZURE
     Dosage: 100 MG, 2X/DAY (BID)
     Route: 048
  4. LEVETIRACETAM. [Suspect]
     Active Substance: LEVETIRACETAM
     Indication: SEIZURE
     Dosage: 2000 MG, 2X/DAY (BID)
     Dates: start: 20160801
  5. TEGRETOL [Concomitant]
     Active Substance: CARBAMAZEPINE
     Indication: SEIZURE
     Dosage: 600 MG, 2X/DAY (BID)
     Route: 048
  6. IBUPROFEN. [Suspect]
     Active Substance: IBUPROFEN
     Indication: HAND FRACTURE
     Dosage: 600 MG DAILY DOSE
     Dates: start: 20180709, end: 2018

REACTIONS (5)
  - Gastric disorder [Recovered/Resolved]
  - Seizure [Recovered/Resolved]
  - Prescribed overdose [Unknown]
  - Off label use [Unknown]
  - Limb injury [Recovering/Resolving]

NARRATIVE: CASE EVENT DATE: 20160801
